FAERS Safety Report 20542843 (Version 1)
Quarter: 2022Q1

REPORT INFORMATION
  Report Type: Spontaneous
  Country: CN (occurrence: CN)
  Receive Date: 20220302
  Receipt Date: 20220302
  Transmission Date: 20220423
  Serious: Yes (Hospitalization)
  Sender: FDA-Public Use
  Company Number: CN-PFIZER INC-202200316828

PATIENT
  Age: 6 Year
  Sex: Male

DRUGS (1)
  1. METHOTREXATE [Suspect]
     Active Substance: METHOTREXATE
     Indication: Lymphoma
     Dosage: 0.4 G, 1X/DAY
     Route: 041
     Dates: start: 20220214, end: 20220214

REACTIONS (4)
  - Vomiting [Recovering/Resolving]
  - Confusional state [Recovering/Resolving]
  - Aphasia [Recovering/Resolving]
  - Language disorder [Recovering/Resolving]

NARRATIVE: CASE EVENT DATE: 20220217
